FAERS Safety Report 20925502 (Version 1)
Quarter: 2022Q2

REPORT INFORMATION
  Report Type: Spontaneous
  Country: US (occurrence: None)
  Receive Date: 20220607
  Receipt Date: 20220607
  Transmission Date: 20220721
  Serious: Yes (Life-Threatening, Hospitalization)
  Sender: FDA-Public Use
  Company Number: None

PATIENT
  Age: 79 Year
  Sex: Male
  Weight: 68 kg

DRUGS (1)
  1. LISINOPRIL [Suspect]
     Active Substance: LISINOPRIL
     Indication: Hypertension
     Dosage: 20 MG EVERY DAY PO
     Route: 048
     Dates: start: 20170322, end: 20211217

REACTIONS (6)
  - Throat tightness [None]
  - Respiratory distress [None]
  - Angioedema [None]
  - Stridor [None]
  - Hypotension [None]
  - Anaphylactic shock [None]

NARRATIVE: CASE EVENT DATE: 20211217
